FAERS Safety Report 9844437 (Version 1)
Quarter: 2014Q1

REPORT INFORMATION
  Report Type: Spontaneous
  Country: FR (occurrence: FR)
  Receive Date: 20140127
  Receipt Date: 20140127
  Transmission Date: 20141002
  Serious: Yes (Hospitalization)
  Sender: FDA-Public Use
  Company Number: FR-ROCHE-1338366

PATIENT
  Age: 56 Year
  Sex: Male

DRUGS (10)
  1. CELLCEPT [Suspect]
     Indication: HEART TRANSPLANT
     Route: 048
     Dates: start: 20000531, end: 20000721
  2. BACTRIM [Suspect]
     Indication: PRODUCT USED FOR UNKNOWN INDICATION
     Route: 048
     Dates: start: 20000531, end: 20000721
  3. GANCICLOVIR SODIUM [Suspect]
     Indication: PRODUCT USED FOR UNKNOWN INDICATION
     Route: 048
     Dates: start: 20000531, end: 20000721
  4. FUMAFER [Concomitant]
     Route: 065
  5. MOPRAL (FRANCE) [Concomitant]
     Route: 065
  6. SOLUPRED (FRANCE) [Concomitant]
     Route: 065
  7. NEORAL [Concomitant]
     Route: 065
  8. VASTEN [Concomitant]
     Route: 065
  9. CORDARONE [Concomitant]
     Route: 065
  10. SPECIAFOLDINE [Concomitant]
     Route: 065

REACTIONS (4)
  - Neutropenia [Unknown]
  - Leukopenia [Unknown]
  - Agranulocytosis [Unknown]
  - Pyrexia [Recovered/Resolved]
